FAERS Safety Report 8584123 (Version 4)
Quarter: 2013Q4

REPORT INFORMATION
  Report Type: Spontaneous
  Country: JP (occurrence: JP)
  Receive Date: 20120529
  Receipt Date: 20131031
  Transmission Date: 20140711
  Serious: Yes (Other)
  Sender: FDA-Public Use
  Company Number: JP-009507513-1204USA01657

PATIENT
  Age: 60 Year
  Sex: Female

DRUGS (5)
  1. IVEMEND [Suspect]
     Indication: PROPHYLAXIS OF NAUSEA AND VOMITING
     Dosage: 150 MG, ONCE
     Route: 041
     Dates: start: 20120206, end: 20120206
  2. IVEMEND [Suspect]
     Dosage: 150 MG, ONCE
     Route: 041
     Dates: start: 20120227, end: 20120227
  3. IVEMEND [Suspect]
     Dosage: 150 MG, ONCE
     Route: 041
     Dates: start: 20120319, end: 20120319
  4. FARMORUBICIN RTU [Suspect]
     Indication: BREAST CANCER
     Route: 041
  5. ENDOXAN [Concomitant]

REACTIONS (3)
  - Injection site vasculitis [Not Recovered/Not Resolved]
  - Injection site pain [Not Recovered/Not Resolved]
  - Injection site phlebitis [Not Recovered/Not Resolved]
